FAERS Safety Report 4394179-8 (Version None)
Quarter: 2004Q3

REPORT INFORMATION
  Report Type: 
  Country: None (occurrence: None)
  Receive Date: 20040707
  Receipt Date: 20040624
  Transmission Date: 20050211
  Serious: Yes (Other)
  Sender: FDA-Public Use
  Company Number: 8005410

PATIENT
  Age: 20 Month

DRUGS (3)
  1. LEVETIRACETAM [Suspect]
     Dosage: 1000 MG 2/D TRP
     Route: 064
     Dates: start: 20010101
  2. LEVETIRACETAM [Suspect]
     Dosage: 1250 MG 2/D TRP
     Route: 064
     Dates: end: 20020601
  3. OXCARBAZEPINE [Concomitant]

REACTIONS (8)
  - ATTENTION DEFICIT/HYPERACTIVITY DISORDER [None]
  - DEVELOPMENTAL DELAY [None]
  - DRUG EXPOSURE DURING PREGNANCY [None]
  - FORCEPS DELIVERY [None]
  - NEONATAL DISORDER [None]
  - PERVASIVE DEVELOPMENTAL DISORDER [None]
  - SENSORY INTEGRATIVE DYSFUNCTION [None]
  - SPEECH DISORDER DEVELOPMENTAL [None]
